FAERS Safety Report 6212306-4 (Version None)
Quarter: 2009Q2

REPORT INFORMATION
  Report Type: 
  Country: None (occurrence: None)
  Receive Date: 20090529
  Receipt Date: 20090526
  Transmission Date: 20091009
  Serious: Yes (Life-Threatening)
  Sender: FDA-Public Use
  Company Number: FABR-1000362

PATIENT
  Age: 21 Year
  Sex: Male
  Weight: 69 kg

DRUGS (2)
  1. FABRAZYME [Suspect]
     Indication: FABRY'S DISEASE
     Dosage: 70 MG, GOW; INTRAVENOUS
     Route: 042
     Dates: end: 20080804
  2. PROMETHAZINE HYDROCHLORIDE [Suspect]
     Dosage: 1 G,

REACTIONS (4)
  - ANAPHYLACTIC REACTION [None]
  - CHEST DISCOMFORT [None]
  - CHILLS [None]
  - DYSPNOEA [None]
